FAERS Safety Report 23556073 (Version 2)
Quarter: 2024Q2

REPORT INFORMATION
  Report Type: Report from Study
  Country: US (occurrence: US)
  Receive Date: 20240222
  Receipt Date: 20240408
  Transmission Date: 20240715
  Serious: Yes (Hospitalization)
  Sender: FDA-Public Use
  Company Number: US-JNJFOC-20240250970

PATIENT
  Age: 38 Year
  Sex: Female
  Weight: 96.248 kg

DRUGS (10)
  1. SPRAVATO [Suspect]
     Active Substance: ESKETAMINE
     Indication: Depression
     Dosage: 56 MG, 1 TOTAL DOSES
     Dates: start: 20231204, end: 20231204
  2. SPRAVATO [Suspect]
     Active Substance: ESKETAMINE
     Dosage: 84 MG, 5 TOTAL DOSES
     Dates: start: 20231205, end: 20231222
  3. GABAPENTIN [Concomitant]
     Active Substance: GABAPENTIN
     Indication: Neuralgia
     Dosage: DOSAGE: 800?NOT EFFECTIVE
  4. LATUDA [Concomitant]
     Active Substance: LURASIDONE HYDROCHLORIDE
     Indication: Depression
     Dosage: DOSAGE: 40?NOT EFFECTIVE
  5. ATOMOXETINE [Concomitant]
     Active Substance: ATOMOXETINE\ATOMOXETINE HYDROCHLORIDE
     Indication: Depression
     Dosage: DOSAGE: 60?NOT EFFECTIVE
  6. EFFEXOR [Concomitant]
     Active Substance: VENLAFAXINE HYDROCHLORIDE
     Indication: Depression
     Dosage: DOSAGE: 150?NOT EFFECTIVE
  7. SUBOXONE [Concomitant]
     Active Substance: BUPRENORPHINE HYDROCHLORIDE\NALOXONE HYDROCHLORIDE
     Indication: Pain
     Dosage: DOSAGE: 8?NOT EFFECTIVE
  8. DOXEPIN [Concomitant]
     Active Substance: DOXEPIN
     Indication: Sleep disorder
     Dosage: DOSAGE: 100?EFFECTIVE
  9. BENADRYL [Concomitant]
     Active Substance: DIPHENHYDRAMINE HYDROCHLORIDE
  10. STRATTERA [Concomitant]
     Active Substance: ATOMOXETINE HYDROCHLORIDE

REACTIONS (1)
  - Condition aggravated [Unknown]
